FAERS Safety Report 18351086 (Version 1)
Quarter: 2020Q4

REPORT INFORMATION
  Report Type: Spontaneous
  Country: JP (occurrence: JP)
  Receive Date: 20201006
  Receipt Date: 20201006
  Transmission Date: 20210114
  Serious: Yes (Hospitalization)
  Sender: FDA-Public Use
  Company Number: JP-ELI_LILLY_AND_COMPANY-JP202008010924

PATIENT
  Age: 68 Year
  Sex: Female

DRUGS (1)
  1. CYRAMZA [Suspect]
     Active Substance: RAMUCIRUMAB
     Indication: HEPATOCELLULAR CARCINOMA
     Dosage: UNK
     Route: 041

REACTIONS (2)
  - Oedema [Recovering/Resolving]
  - Ascites [Recovering/Resolving]
